FAERS Safety Report 15632332 (Version 2)
Quarter: 2019Q1

REPORT INFORMATION
  Report Type: Spontaneous
  Country: JP (occurrence: JP)
  Receive Date: 20181119
  Receipt Date: 20190128
  Transmission Date: 20190417
  Serious: Yes (Death, Other)
  Sender: FDA-Public Use
  Company Number: JP-PFIZER INC-2018475545

PATIENT
  Sex: Male

DRUGS (7)
  1. 5-FU [FLUOROURACIL] [Concomitant]
     Active Substance: FLUOROURACIL
     Indication: COLON CANCER
     Dosage: UNK
     Route: 040
     Dates: start: 20180326, end: 20180918
  2. VECTIBIX [Concomitant]
     Active Substance: PANITUMUMAB
     Dosage: UNK
     Dates: start: 20180423
  3. LEVOFOLINATE YAKULT [Suspect]
     Active Substance: LEVOLEUCOVORIN CALCIUM
     Indication: COLON CANCER
     Dosage: UNK UNK, 1X/DAY
     Route: 041
     Dates: start: 20180326, end: 20180918
  4. ELPLAT [Suspect]
     Active Substance: OXALIPLATIN
     Indication: COLON CANCER
     Dosage: UNK UNK, 1X/DAY
     Route: 041
     Dates: start: 20180326, end: 20180720
  5. ZALTRAP [Suspect]
     Active Substance: ZIV-AFLIBERCEPT
     Indication: COLON CANCER
     Dosage: UNK UNK, 1X/DAY
     Route: 041
     Dates: start: 20180918, end: 20180918
  6. 5-FU [FLUOROURACIL] [Concomitant]
     Active Substance: FLUOROURACIL
     Dosage: CONTINUOUS INFUSION
     Route: 042
     Dates: start: 20180918, end: 20180918
  7. CAMPTO [Suspect]
     Active Substance: IRINOTECAN
     Indication: COLON CANCER
     Dosage: UNK UNK, 1X/DAY
     Route: 041
     Dates: start: 20180918, end: 20180918

REACTIONS (2)
  - Aortic dissection [Fatal]
  - Hypersensitivity [Recovering/Resolving]

NARRATIVE: CASE EVENT DATE: 20180720
